FAERS Safety Report 6387190-9 (Version None)
Quarter: 2009Q4

REPORT INFORMATION
  Report Type: 
  Country: None (occurrence: None)
  Receive Date: 20091002
  Receipt Date: 20090921
  Transmission Date: 20100525
  Serious: Yes (Hospitalization, Other)
  Sender: FDA-Public Use
  Company Number: PHHY2009FR28349

PATIENT
  Sex: Male
  Weight: 78 kg

DRUGS (5)
  1. LESCOL [Suspect]
     Dosage: 80 MG, QD
     Route: 048
     Dates: start: 20060101
  2. KARDEGIC [Concomitant]
     Dosage: 160 MG, QD
     Route: 048
  3. DILTIAZEM [Concomitant]
     Dosage: 200 MG, QD
     Route: 048
  4. RENITEC [Concomitant]
     Dosage: 10 MG, QD
     Route: 048
  5. DIAMICRON [Concomitant]
     Dosage: 30 MG, QD
     Route: 048

REACTIONS (28)
  - BLOOD CREATININE INCREASED [None]
  - BLOOD GLUCOSE INCREASED [None]
  - BLOOD LACTATE DEHYDROGENASE INCREASED [None]
  - BLOOD PRESSURE INCREASED [None]
  - BLOOD UREA INCREASED [None]
  - BODY TEMPERATURE INCREASED [None]
  - C-REACTIVE PROTEIN INCREASED [None]
  - CARBON MONOXIDE DIFFUSING CAPACITY DECREASED [None]
  - CD8 LYMPHOCYTES [None]
  - CHEST PAIN [None]
  - CHLAMYDIA TEST POSITIVE [None]
  - COLLAGEN DISORDER [None]
  - DYSPNOEA [None]
  - FATIGUE [None]
  - GAMMA-GLUTAMYLTRANSFERASE INCREASED [None]
  - HEART RATE INCREASED [None]
  - HYPERSENSITIVITY [None]
  - INTERSTITIAL LUNG DISEASE [None]
  - LUNG DISORDER [None]
  - LUNG INFILTRATION [None]
  - LYMPHADENOPATHY MEDIASTINAL [None]
  - MYCOPLASMA TEST POSITIVE [None]
  - PCO2 DECREASED [None]
  - PNEUMONIA [None]
  - PO2 DECREASED [None]
  - PULMONARY ARTERIAL HYPERTENSION [None]
  - TREMOR [None]
  - WHITE BLOOD CELL COUNT INCREASED [None]
